FAERS Safety Report 4324402-7 (Version None)
Quarter: 2004Q1

REPORT INFORMATION
  Report Type: 
  Country: None (occurrence: None)
  Receive Date: 20040326
  Receipt Date: 20040204
  Transmission Date: 20041129
  Serious: No
  Sender: FDA-Public Use
  Company Number: US-GLAXOSMITHKLINE-A0497348A

PATIENT
  Age: 49 Year
  Sex: Female
  Weight: 61.4 kg

DRUGS (4)
  1. ADVAIR DISKUS 100/50 [Suspect]
     Indication: ASTHMA
     Route: 055
     Dates: start: 20010901, end: 20011001
  2. HORMONE REPLACEMENT [Suspect]
     Indication: HORMONE REPLACEMENT THERAPY
     Dosage: .1MG WEEKLY
     Route: 062
     Dates: start: 20001101
  3. CLARITIN [Concomitant]
     Dosage: 10MG PER DAY
     Route: 048
  4. LIPITOR [Concomitant]
     Dosage: 5MG TWO TIMES PER WEEK
     Route: 048

REACTIONS (4)
  - DRUG INTERACTION [None]
  - INSOMNIA [None]
  - MENOPAUSAL SYMPTOMS [None]
  - NIGHT SWEATS [None]
